FAERS Safety Report 12973434 (Version 4)
Quarter: 2017Q3

REPORT INFORMATION
  Report Type: Report from Study
  Country: US (occurrence: US)
  Receive Date: 20161124
  Receipt Date: 20170807
  Transmission Date: 20171127
  Serious: Yes (Death, Hospitalization, Other)
  Sender: FDA-Public Use
  Company Number: US-JNJFOC-20161107578

PATIENT
  Age: 82 Year
  Sex: Male

DRUGS (27)
  1. IMBRUVICA [Suspect]
     Active Substance: IBRUTINIB
     Indication: MANTLE CELL LYMPHOMA
     Route: 048
     Dates: start: 201611, end: 201611
  2. VITAMIN D [Concomitant]
     Active Substance: CHOLECALCIFEROL
     Dosage: 2000 UNIT, QD
  3. CLONAZEPAM. [Concomitant]
     Active Substance: CLONAZEPAM
     Dosage: 0.5 MG, UNK
  4. FERROUS GLUCONATE [Concomitant]
     Active Substance: FERROUS GLUCONATE
     Dosage: 324 ONCE QD
  5. TIMOLOL. [Concomitant]
     Active Substance: TIMOLOL
  6. CYANOCOBALAMIN. [Concomitant]
     Active Substance: CYANOCOBALAMIN
  7. ENOXAPARIN [Concomitant]
     Active Substance: ENOXAPARIN
     Route: 058
  8. VANCOMYCIN [Concomitant]
     Active Substance: VANCOMYCIN
  9. PREDNISONE. [Concomitant]
     Active Substance: PREDNISONE
     Dosage: 5 MG, QD
  10. FLONASE [Concomitant]
     Active Substance: FLUTICASONE PROPIONATE
     Dosage: 2 PUFFS DAILY
  11. BENDAMUSTINE [Suspect]
     Active Substance: BENDAMUSTINE
     Indication: PRODUCT USED FOR UNKNOWN INDICATION
     Route: 065
     Dates: start: 201702
  12. 5 FU [Suspect]
     Active Substance: FLUOROURACIL
     Indication: SQUAMOUS CELL CARCINOMA
     Route: 065
  13. ALLOPURINOL. [Concomitant]
     Active Substance: ALLOPURINOL
     Dosage: 100 MG, QD
  14. REMERON [Concomitant]
     Active Substance: MIRTAZAPINE
     Dosage: 15 MG, QHS
  15. HEPARIN [Concomitant]
     Active Substance: HEPARIN SODIUM
     Dosage: EVERY 8 HOURS
  16. DOCUSATE [Concomitant]
     Active Substance: DOCUSATE
  17. SODIUM CHLORIDE. [Concomitant]
     Active Substance: SODIUM CHLORIDE
  18. FOLIC ACID. [Concomitant]
     Active Substance: FOLIC ACID
     Indication: RHEUMATOID ARTHRITIS
     Dosage: 1 MG, QD
  19. METHOTREXATE. [Concomitant]
     Active Substance: METHOTREXATE
     Indication: RHEUMATOID ARTHRITIS
     Dosage: 10 MG, Q WEEKLY
  20. AZELASTINE [Concomitant]
     Active Substance: AZELASTINE
     Dosage: 2 SPRAYS TWICE DAILY
  21. CHOLECALCIFEROL [Concomitant]
     Active Substance: CHOLECALCIFEROL
     Dosage: 2000 UNIT, QD
  22. IMBRUVICA [Suspect]
     Active Substance: IBRUTINIB
     Indication: MANTLE CELL LYMPHOMA
     Route: 048
     Dates: start: 20161012, end: 20161112
  23. BENDAMUSTINE [Suspect]
     Active Substance: BENDAMUSTINE
     Indication: PRODUCT USED FOR UNKNOWN INDICATION
     Dosage: 70 MG/M2, UNK
     Route: 065
     Dates: start: 20170726
  24. DIPROPHYLLINE [Concomitant]
     Active Substance: DYPHYLLINE
     Dosage: 2 UNK, BID
  25. PROTONIX [Concomitant]
     Active Substance: PANTOPRAZOLE SODIUM
     Dosage: 40 MG, QD
  26. CEFTRIAXONE. [Concomitant]
     Active Substance: CEFTRIAXONE
  27. PANTOPRAZOLE [Concomitant]
     Active Substance: PANTOPRAZOLE

REACTIONS (30)
  - Loss of consciousness [Recovered/Resolved]
  - Depression [Unknown]
  - Urinary tract infection staphylococcal [Unknown]
  - Pneumonia [Unknown]
  - Pneumonitis [Unknown]
  - Squamous cell carcinoma [Unknown]
  - Atelectasis [Unknown]
  - Disease progression [Fatal]
  - Lung infiltration [Recovering/Resolving]
  - Lung neoplasm [Unknown]
  - Arthralgia [Unknown]
  - Pyrexia [Recovered/Resolved]
  - Nasal congestion [Unknown]
  - Drug dose omission [Not Recovered/Not Resolved]
  - Erythema [Unknown]
  - Prostatic specific antigen increased [Unknown]
  - Weight increased [Unknown]
  - Fall [Recovered/Resolved]
  - Proteus test positive [Unknown]
  - Fatigue [Not Recovered/Not Resolved]
  - Bone lesion [Unknown]
  - Haematocrit abnormal [Unknown]
  - Increased tendency to bruise [Unknown]
  - Urosepsis [Unknown]
  - Lymphoma [Unknown]
  - Cough [Recovering/Resolving]
  - Ecchymosis [Unknown]
  - Contusion [Not Recovered/Not Resolved]
  - Blood lactate dehydrogenase increased [Unknown]
  - Haematuria [Unknown]

NARRATIVE: CASE EVENT DATE: 201610
